FAERS Safety Report 18517140 (Version 2)
Quarter: 2020Q4

REPORT INFORMATION
  Report Type: Report from Study
  Country: SG (occurrence: SG)
  Receive Date: 20201118
  Receipt Date: 20201120
  Transmission Date: 20210114
  Serious: Yes (Hospitalization)
  Sender: FDA-Public Use
  Company Number: NVSC2020SG306307

PATIENT
  Age: 56 Year
  Sex: Male
  Weight: 76 kg

DRUGS (12)
  1. BLINDED LCZ696 [Suspect]
     Active Substance: SACUBITRIL\VALSARTAN
     Indication: ACUTE MYOCARDIAL INFARCTION
     Dosage: CODE NOT BROKEN
     Route: 048
     Dates: start: 20170419
  2. BLINDED RAMIPRIL [Suspect]
     Active Substance: RAMIPRIL
     Indication: ACUTE MYOCARDIAL INFARCTION
     Dosage: CODE NOT BROKEN
     Route: 048
     Dates: start: 20170419
  3. TRIMETAZIDINE [Concomitant]
     Active Substance: TRIMETAZIDINE
     Indication: CHEST PAIN
     Dosage: 20 MG, TID
     Route: 048
     Dates: start: 20200827
  4. BLINDED NO TREATMENT RECEIVED [Suspect]
     Active Substance: INVESTIGATIONAL PRODUCT
     Indication: ACUTE MYOCARDIAL INFARCTION
     Dosage: CODE NOT BROKEN
     Route: 048
     Dates: start: 20170419
  5. BISOPROLOL [Concomitant]
     Active Substance: BISOPROLOL
     Indication: ACUTE MYOCARDIAL INFARCTION
     Dosage: 8 MG, QD
     Route: 048
     Dates: start: 202007
  6. DIOVAN [Suspect]
     Active Substance: VALSARTAN
     Indication: ACUTE MYOCARDIAL INFARCTION
     Dosage: CODE NOT BROKEN
     Route: 048
     Dates: start: 20170419
  7. PLACEBO [Suspect]
     Active Substance: UNSPECIFIED INGREDIENT
     Indication: ACUTE MYOCARDIAL INFARCTION
     Dosage: CODE NOT BROKEN
     Route: 048
     Dates: start: 20170419
  8. EZETIMIBE. [Concomitant]
     Active Substance: EZETIMIBE
     Indication: HYPERLIPIDAEMIA
     Dosage: 5 MG, QD
     Route: 048
     Dates: start: 20170816
  9. ISOSORBIDE MONONITRATE. [Concomitant]
     Active Substance: ISOSORBIDE MONONITRATE
     Indication: CHEST PAIN
     Dosage: 60 MG, QD
     Route: 048
     Dates: start: 202007
  10. TICAGRELOR. [Concomitant]
     Active Substance: TICAGRELOR
     Indication: ACUTE MYOCARDIAL INFARCTION
     Dosage: 90 MG, BID
     Route: 048
     Dates: start: 20200720
  11. ASPIRIN. [Concomitant]
     Active Substance: ASPIRIN
     Indication: ACUTE MYOCARDIAL INFARCTION
     Dosage: 100 MG, QD
     Route: 048
     Dates: start: 20170417
  12. ATORVASTATIN [Concomitant]
     Active Substance: ATORVASTATIN
     Indication: HYPERLIPIDAEMIA
     Dosage: 40 MG, QD
     Route: 065
     Dates: start: 20170824

REACTIONS (1)
  - Angina pectoris [Recovering/Resolving]

NARRATIVE: CASE EVENT DATE: 20201106
